APPROVED DRUG PRODUCT: CETIRIZINE HYDROCHLORIDE ALLERGY
Active Ingredient: CETIRIZINE HYDROCHLORIDE
Strength: 10MG
Dosage Form/Route: TABLET;ORAL
Application: A202277 | Product #004
Applicant: AIPING PHARMACEUTICAL INC
Approved: Mar 11, 2014 | RLD: No | RS: No | Type: DISCN